FAERS Safety Report 11352958 (Version 1)
Quarter: 2015Q3

REPORT INFORMATION
  Report Type: Spontaneous
  Country: US (occurrence: US)
  Receive Date: 20150807
  Receipt Date: 20150807
  Transmission Date: 20151125
  Serious: No
  Sender: FDA-Public Use
  Company Number: US-JNJFOC-20150310583

PATIENT
  Sex: Female
  Weight: 56.7 kg

DRUGS (4)
  1. MENS ROGAINE EXTRA STRENGTH [Suspect]
     Active Substance: MINOXIDIL
     Route: 061
  2. XANAX [Concomitant]
     Active Substance: ALPRAZOLAM
     Indication: SLEEP DISORDER THERAPY
     Dosage: .75 DAILY??INTERVAL: 3 YEARS
     Route: 065
  3. XANAX [Concomitant]
     Active Substance: ALPRAZOLAM
     Indication: ANXIETY
     Dosage: .75 DAILY??INTERVAL: 3 YEARS
     Route: 065
  4. MENS ROGAINE EXTRA STRENGTH [Suspect]
     Active Substance: MINOXIDIL
     Indication: ALOPECIA
     Dosage: ONE CAPFULL DAILY
     Route: 061

REACTIONS (4)
  - Wrong patient received medication [Unknown]
  - Incorrect dose administered [Unknown]
  - Dizziness [Not Recovered/Not Resolved]
  - Inappropriate schedule of drug administration [Unknown]
